FAERS Safety Report 18083674 (Version 3)
Quarter: 2024Q2

REPORT INFORMATION
  Report Type: Spontaneous
  Country: ES (occurrence: ES)
  Receive Date: 20200729
  Receipt Date: 20240417
  Transmission Date: 20240715
  Serious: Yes (Hospitalization, Other)
  Sender: FDA-Public Use
  Company Number: ES-ACCORD-193287

PATIENT
  Age: 52 Year
  Sex: Female
  Weight: 43 kg

DRUGS (3)
  1. MYCOPHENOLATE MOFETIL [Suspect]
     Active Substance: MYCOPHENOLATE MOFETIL
     Indication: Product used for unknown indication
  2. PREDNISONE [Suspect]
     Active Substance: PREDNISONE
     Indication: Product used for unknown indication
  3. HYDROXYCHLOROQUINE [Suspect]
     Active Substance: HYDROXYCHLOROQUINE
     Indication: Product used for unknown indication

REACTIONS (4)
  - Necrotising retinitis [Recovered/Resolved]
  - Macular degeneration [Not Recovered/Not Resolved]
  - Leukopenia [Recovered/Resolved]
  - Cytomegalovirus chorioretinitis [Recovered/Resolved]
